FAERS Safety Report 5644641-2 (Version None)
Quarter: 2008Q1

REPORT INFORMATION
  Report Type: 
  Country: None (occurrence: None)
  Receive Date: 20080229
  Receipt Date: 20070515
  Transmission Date: 20080703
  Serious: No
  Sender: FDA-Public Use
  Company Number: A0648779A

PATIENT
  Age: 79 Year
  Sex: Female

DRUGS (10)
  1. VALTREX [Suspect]
     Dosage: 1000MG THREE TIMES PER DAY
     Route: 048
     Dates: start: 20070326, end: 20070327
  2. CLONIDINE [Concomitant]
     Dosage: .1MG TWICE PER DAY
     Route: 048
  3. ZANTAC 150 [Concomitant]
     Dosage: 150MG AT NIGHT
     Route: 048
  4. LASIX [Concomitant]
     Dosage: 40MG PER DAY
     Route: 048
  5. COREG [Concomitant]
     Dosage: 25MG TWICE PER DAY
     Route: 048
  6. LOVASTATIN [Concomitant]
     Dosage: 40MG AT NIGHT
     Route: 048
  7. FOSAMAX [Concomitant]
     Dosage: 70MG WEEKLY
     Route: 048
  8. VERAPAMIL [Concomitant]
     Dosage: 240MG PER DAY
     Route: 048
  9. LISINOPRIL [Concomitant]
     Dosage: 20MG PER DAY
     Route: 048
  10. VICODIN [Concomitant]
     Route: 048

REACTIONS (5)
  - BACK PAIN [None]
  - DRUG INTERACTION [None]
  - ERYTHEMA [None]
  - PRURITUS [None]
  - URTICARIA [None]
